FAERS Safety Report 8472865-8 (Version None)
Quarter: 2012Q2

REPORT INFORMATION
  Report Type: 
  Country: None (occurrence: None)
  Receive Date: 20120627
  Receipt Date: 20110520
  Transmission Date: 20120825
  Serious: No
  Sender: FDA-Public Use
  Company Number: US-MYLANLABS-2011S1007742

PATIENT
  Age: 50 Year
  Sex: Female

DRUGS (6)
  1. METHADONE HCL [Concomitant]
     Route: 048
  2. OMEPRAZOLE [Suspect]
     Indication: GASTROOESOPHAGEAL REFLUX DISEASE
     Route: 048
     Dates: start: 20110319, end: 20110320
  3. OMEPRAZOLE [Suspect]
     Indication: PEPTIC ULCER
     Route: 048
     Dates: start: 20110319, end: 20110320
  4. MULTI-VITAMINS [Concomitant]
  5. CLARITIN-D [Concomitant]
  6. PHENOBARBITAL TAB [Concomitant]
     Route: 048

REACTIONS (5)
  - ABDOMINAL PAIN UPPER [None]
  - GASTROOESOPHAGEAL REFLUX DISEASE [None]
  - CONDITION AGGRAVATED [None]
  - NON-CARDIAC CHEST PAIN [None]
  - DYSPHAGIA [None]
